FAERS Safety Report 13600381 (Version 13)
Quarter: 2019Q4

REPORT INFORMATION
  Report Type: Spontaneous
  Country: US (occurrence: US)
  Receive Date: 20170601
  Receipt Date: 20191028
  Transmission Date: 20200122
  Serious: No
  Sender: FDA-Public Use
  Company Number: US-PFIZER INC-2016314605

PATIENT
  Age: 40 Year
  Sex: Female
  Weight: 111.5 kg

DRUGS (8)
  1. LASIX [Concomitant]
     Active Substance: FUROSEMIDE
     Indication: FLUID RETENTION
     Dosage: 40 MG, DAILY
  2. LYRICA [Suspect]
     Active Substance: PREGABALIN
     Indication: NEUROPATHY PERIPHERAL
     Dosage: 225 MG, 2X/DAY
     Route: 048
     Dates: start: 20160617
  3. LYRICA [Suspect]
     Active Substance: PREGABALIN
     Indication: ARTHRALGIA
     Dosage: 225 MG, 2X/DAY
     Route: 048
  4. HYDROCODONE/ACETAMINOPHEN [Concomitant]
     Active Substance: ACETAMINOPHEN\HYDROCODONE
     Indication: SCOLIOSIS
     Dosage: UNK (HYDROCODONE: 10MG-ACETAMINOPHEN: 325MG)
  5. LYRICA [Suspect]
     Active Substance: PREGABALIN
     Indication: DIABETIC NEUROPATHY
     Dosage: 225 MG, 2X/DAY
     Route: 048
     Dates: start: 20161118
  6. LYRICA [Suspect]
     Active Substance: PREGABALIN
     Indication: PAIN
     Dosage: 2 DF, 2X/DAY (TWO, 25 TWICE A DAY)
     Route: 048
  7. LYRICA [Suspect]
     Active Substance: PREGABALIN
     Indication: NEURALGIA
     Dosage: 225 MG, 2X/DAY
     Route: 048
     Dates: start: 20170518
  8. LYRICA [Suspect]
     Active Substance: PREGABALIN
     Indication: SPINAL PAIN
     Dosage: 225 MG, 2X/DAY
     Route: 048
     Dates: start: 20190116

REACTIONS (4)
  - Product dispensing issue [Unknown]
  - Body height decreased [Unknown]
  - Product dose omission [Unknown]
  - Weight increased [Unknown]
